FAERS Safety Report 18560765 (Version 4)
Quarter: 2020Q4

REPORT INFORMATION
  Report Type: Report from Study
  Country: BR (occurrence: BR)
  Receive Date: 20201130
  Receipt Date: 20201229
  Transmission Date: 20210114
  Serious: Yes (Life-Threatening, Hospitalization, Other)
  Sender: FDA-Public Use
  Company Number: BR-GILEAD-2020-0503685

PATIENT
  Age: 63 Year
  Sex: Female
  Weight: 97 kg

DRUGS (4)
  1. REMDESIVIR. [Suspect]
     Active Substance: REMDESIVIR
     Dosage: 100 MG
     Route: 042
     Dates: start: 20201016, end: 20201024
  2. REMDESIVIR. [Suspect]
     Active Substance: REMDESIVIR
     Dosage: 100 ML, ONCE
     Route: 042
     Dates: start: 20201015
  3. TOCILIZUMAB. [Suspect]
     Active Substance: TOCILIZUMAB
     Indication: COVID-19 PNEUMONIA
     Dosage: UNK
     Route: 042
     Dates: start: 20201015
  4. REMDESIVIR. [Suspect]
     Active Substance: REMDESIVIR
     Indication: COVID-19 PNEUMONIA
     Dosage: 200 MG
     Route: 042
     Dates: start: 20201015, end: 20201015

REACTIONS (5)
  - Hypoxic-ischaemic encephalopathy [Recovering/Resolving]
  - Epistaxis [Recovering/Resolving]
  - Sepsis [Recovered/Resolved]
  - Liver injury [Recovering/Resolving]
  - Urinary tract infection [Recovered/Resolved]

NARRATIVE: CASE EVENT DATE: 20201101
